FAERS Safety Report 7818221-4 (Version None)
Quarter: 2011Q4

REPORT INFORMATION
  Report Type: 
  Country: None (occurrence: None)
  Receive Date: 20111017
  Receipt Date: 20111011
  Transmission Date: 20120403
  Serious: Yes (Other)
  Sender: FDA-Public Use
  Company Number: US-B.I. PHARMACEUTICALS,INC./RIDGEFIELD-2011-BP-23952BP

PATIENT
  Sex: Male

DRUGS (1)
  1. PRADAXA [Suspect]
     Indication: STENT PLACEMENT
     Dosage: 150 MG
     Route: 048
     Dates: start: 20111009, end: 20111009

REACTIONS (7)
  - LOSS OF CONSCIOUSNESS [None]
  - RASH GENERALISED [None]
  - SWELLING [None]
  - CHILLS [None]
  - CONVULSION [None]
  - RASH ERYTHEMATOUS [None]
  - PRURITUS [None]
